FAERS Safety Report 16478828 (Version 17)
Quarter: 2025Q1

REPORT INFORMATION
  Report Type: Spontaneous
  Country: US (occurrence: US)
  Receive Date: 20190626
  Receipt Date: 20250305
  Transmission Date: 20250408
  Serious: No
  Sender: PFIZER
  Company Number: US-PFIZER INC-2019274426

PATIENT
  Age: 77 Year
  Sex: Female
  Weight: 52.5 kg

DRUGS (4)
  1. IBRANCE [Suspect]
     Active Substance: PALBOCICLIB
     Indication: Breast cancer female
     Dates: start: 20190605
  2. IBRANCE [Suspect]
     Active Substance: PALBOCICLIB
     Dosage: 125 MG, DAILY (1 PO DAILY; QUANTITY: 30)
     Route: 048
  3. IBRANCE [Suspect]
     Active Substance: PALBOCICLIB
     Route: 048
  4. LETROZOLE [Suspect]
     Active Substance: LETROZOLE
     Dates: start: 20190605

REACTIONS (5)
  - Fatigue [Recovering/Resolving]
  - Full blood count abnormal [Unknown]
  - White blood cell count decreased [Unknown]
  - Illness [Unknown]
  - Hypersomnia [Unknown]

NARRATIVE: CASE EVENT DATE: 20190601
